FAERS Safety Report 9882273 (Version 2)
Quarter: 2014Q1

REPORT INFORMATION
  Report Type: Report from Study
  Country: US (occurrence: US)
  Receive Date: 20140207
  Receipt Date: 20140207
  Transmission Date: 20141002
  Serious: Yes (Other)
  Sender: FDA-Public Use
  Company Number: US-SA-2013SA134855

PATIENT
  Age: 31 Year
  Sex: Male

DRUGS (1)
  1. AUBAGIO [Suspect]
     Indication: MULTIPLE SCLEROSIS
     Route: 048
     Dates: start: 20131212, end: 20140115

REACTIONS (3)
  - Nephrolithiasis [Unknown]
  - Dyspepsia [Unknown]
  - Memory impairment [Unknown]
